FAERS Safety Report 21092981 (Version 2)
Quarter: 2022Q3

REPORT INFORMATION
  Report Type: Spontaneous
  Country: US (occurrence: US)
  Receive Date: 20220718
  Receipt Date: 20220822
  Transmission Date: 20221026
  Serious: No
  Sender: FDA-Public Use
  Company Number: US-SA-SAC20220714000433

PATIENT
  Age: 64 Year
  Sex: Female

DRUGS (1)
  1. AUBAGIO [Suspect]
     Active Substance: TERIFLUNOMIDE
     Indication: Multiple sclerosis
     Dosage: 14MG,1 TABLET EVERY DAY
     Route: 048
     Dates: start: 20191004

REACTIONS (1)
  - Fall [Not Recovered/Not Resolved]

NARRATIVE: CASE EVENT DATE: 20220101
